FAERS Safety Report 4500659-4 (Version None)
Quarter: 2004Q4

REPORT INFORMATION
  Report Type: 
  Country: None (occurrence: None)
  Receive Date: 20041109
  Receipt Date: 20041026
  Transmission Date: 20050328
  Serious: Yes (Death)
  Sender: FDA-Public Use
  Company Number: USA041082254

PATIENT
  Age: 70 Year
  Sex: Female

DRUGS (7)
  1. PROZAC [Suspect]
     Indication: DEPRESSION
     Dosage: 40 MG DAY
     Dates: start: 20020101
  2. TRAZODONE HCL [Concomitant]
  3. ACIPHEX [Concomitant]
  4. PRAVACHOL [Concomitant]
  5. SYNTHROID [Concomitant]
  6. PLAVIX (CLOPIDROGREL SULFATE) [Concomitant]
  7. MICRO INFARCT DEMENTIA [Concomitant]

REACTIONS (2)
  - COMPLETED SUICIDE [None]
  - DRUG TOXICITY [None]
